FAERS Safety Report 5726833-7 (Version None)
Quarter: 2008Q2

REPORT INFORMATION
  Report Type: 
  Country: None (occurrence: None)
  Receive Date: 20080502
  Receipt Date: 20080421
  Transmission Date: 20081010
  Serious: Yes (Other)
  Sender: FDA-Public Use
  Company Number: PT-PFIZER INC-2008035023

PATIENT
  Age: 55 Year
  Sex: Female
  Weight: 80 kg

DRUGS (2)
  1. ZMAX [Suspect]
     Indication: SINUSITIS
     Route: 048
     Dates: start: 20080317, end: 20080317
  2. CODEINE/PHENYLTOLOXAMINE [Interacting]
     Indication: SINUSITIS
     Dosage: DAILY DOSE:10ML
     Route: 048
     Dates: start: 20080317, end: 20080317

REACTIONS (5)
  - DIZZINESS [None]
  - EYELID OEDEMA [None]
  - LOSS OF CONSCIOUSNESS [None]
  - PUPILS UNEQUAL [None]
  - SYNCOPE [None]
